FAERS Safety Report 12707929 (Version 1)
Quarter: 2016Q3

REPORT INFORMATION
  Report Type: Spontaneous
  Country: US (occurrence: US)
  Receive Date: 20160901
  Receipt Date: 20160901
  Transmission Date: 20161109
  Serious: Yes (Death)
  Sender: FDA-Public Use
  Company Number: US-PFIZER INC-2016406764

PATIENT
  Age: 73 Year
  Sex: Male

DRUGS (1)
  1. SUTENT [Suspect]
     Active Substance: SUNITINIB MALATE
     Dosage: 25 MG, CYCLIC (14 DAYS ON FOLLOWED BY 14 DAYS OFF)
     Route: 048
     Dates: start: 20160526, end: 20160819

REACTIONS (1)
  - Death [Fatal]
